FAERS Safety Report 5207213-X (Version None)
Quarter: 2007Q1

REPORT INFORMATION
  Report Type: 
  Country: None (occurrence: None)
  Receive Date: 20070112
  Receipt Date: 20070111
  Transmission Date: 20070707
  Serious: Yes (Hospitalization)
  Sender: FDA-Public Use
  Company Number: FR-GLAXOSMITHKLINE-B0453671A

PATIENT
  Age: 1 Year
  Sex: Male

DRUGS (2)
  1. CLAMOXYL [Suspect]
     Indication: OSTEOMYELITIS
     Dosage: 1000MG PER DAY
     Route: 048
     Dates: start: 20061129, end: 20070101
  2. AMOXICILLIN [Suspect]
     Indication: OSTEOMYELITIS
     Route: 042
     Dates: start: 20061123, end: 20061129

REACTIONS (4)
  - BLISTER [None]
  - EPSTEIN-BARR VIRUS TEST POSITIVE [None]
  - PYREXIA [None]
  - THROMBOCYTOPENIC PURPURA [None]
